FAERS Safety Report 10407253 (Version 1)
Quarter: 2014Q1

REPORT INFORMATION
  Report Type: Spontaneous
  Country: US (occurrence: None)
  Receive Date: 20130225
  Receipt Date: 20130225
  Transmission Date: 20141002
  Serious: No
  Sender: FDA-Public Use
  Company Number: 368280N

PATIENT
  Age: 45 Year
  Sex: Female

DRUGS (2)
  1. VICTOZA (LIRAGLUTIDE) SOLUTION FOR INJECTION, 6MG/ML [Suspect]
     Indication: TYPE 2 DIABETES MELLITUS
     Dosage: 1.8, SUBCUTANEOUS
  2. METFORMIN [Concomitant]

REACTIONS (3)
  - Device malfunction [None]
  - Injection site haemorrhage [None]
  - Injection site pain [None]
